FAERS Safety Report 9570502 (Version 2)
Quarter: 2013Q4

REPORT INFORMATION
  Report Type: Spontaneous
  Country: BR (occurrence: BR)
  Receive Date: 20131001
  Receipt Date: 20131001
  Transmission Date: 20140711
  Serious: Yes (Hospitalization)
  Sender: FDA-Public Use
  Company Number: BR-BIOGENIDEC-2013BI005381

PATIENT
  Age: 34 Year
  Sex: Female
  Weight: 62 kg

DRUGS (1)
  1. AVONEX [Suspect]
     Indication: MULTIPLE SCLEROSIS
     Route: 030
     Dates: start: 20120706

REACTIONS (3)
  - Optic neuritis [Not Recovered/Not Resolved]
  - Anxiety [Unknown]
  - Multiple sclerosis relapse [Recovered/Resolved]
